FAERS Safety Report 10332041 (Version 5)
Quarter: 2015Q2

REPORT INFORMATION
  Report Type: Spontaneous
  Country: US (occurrence: US)
  Receive Date: 20140722
  Receipt Date: 20150630
  Transmission Date: 20150821
  Serious: Yes (Hospitalization)
  Sender: FDA-Public Use
  Company Number: US-BAYER-2014-107361

PATIENT
  Age: 22 Year
  Sex: Female
  Weight: 43.84 kg

DRUGS (2)
  1. MIRENA [Suspect]
     Active Substance: LEVONORGESTREL
     Indication: CONTRACEPTION
     Dosage: 20 MCG/24HR, CONT
     Route: 015
     Dates: start: 20111011, end: 20120426
  2. MIRENA [Suspect]
     Active Substance: LEVONORGESTREL
     Indication: MENORRHAGIA

REACTIONS (7)
  - Uterine perforation [None]
  - Device dislocation [None]
  - Device difficult to use [None]
  - Ovarian cyst [None]
  - Vaginal haemorrhage [None]
  - Pelvic pain [None]
  - Injury [None]

NARRATIVE: CASE EVENT DATE: 201111
